FAERS Safety Report 13301964 (Version 4)
Quarter: 2017Q3

REPORT INFORMATION
  Report Type: Report from Study
  Country: US (occurrence: US)
  Receive Date: 20170307
  Receipt Date: 20170728
  Transmission Date: 20171127
  Serious: Yes (Other)
  Sender: FDA-Public Use
  Company Number: US-AMGEN-USASL2017014732

PATIENT
  Age: 54 Year
  Sex: Male

DRUGS (5)
  1. REPATHA [Suspect]
     Active Substance: EVOLOCUMAB
     Indication: LOW DENSITY LIPOPROTEIN INCREASED
  2. REPATHA [Suspect]
     Active Substance: EVOLOCUMAB
     Indication: CORONARY ARTERY DISEASE
  3. REPATHA [Suspect]
     Active Substance: EVOLOCUMAB
     Indication: BLOOD CHOLESTEROL ABNORMAL
     Dosage: 140 MG, Q2WK
     Route: 058
     Dates: start: 20161227
  4. REPATHA [Suspect]
     Active Substance: EVOLOCUMAB
     Indication: HYPERCHOLESTEROLAEMIA
  5. REPATHA [Suspect]
     Active Substance: EVOLOCUMAB
     Indication: BLOOD CHOLESTEROL INCREASED

REACTIONS (27)
  - Myalgia [Unknown]
  - Cough [Recovering/Resolving]
  - Injection site haemorrhage [Unknown]
  - Pain in extremity [Unknown]
  - Dry mouth [Unknown]
  - Injection site erythema [Recovered/Resolved]
  - Laceration [Unknown]
  - Injection site discomfort [Not Recovered/Not Resolved]
  - General physical health deterioration [Unknown]
  - Fatigue [Unknown]
  - Drug dose omission [Unknown]
  - Nasopharyngitis [Recovering/Resolving]
  - Skeletal injury [Unknown]
  - Injection site pain [Recovering/Resolving]
  - Influenza like illness [Unknown]
  - Sinus disorder [Unknown]
  - Arthralgia [Unknown]
  - Pneumonia [Unknown]
  - Malaise [Unknown]
  - Wrong technique in product usage process [Unknown]
  - Headache [Unknown]
  - Influenza [Unknown]
  - Injection site bruising [Recovered/Resolved]
  - Memory impairment [Unknown]
  - Mental impairment [Unknown]
  - Tenderness [Not Recovered/Not Resolved]
  - Back pain [Recovering/Resolving]

NARRATIVE: CASE EVENT DATE: 20170102
